FAERS Safety Report 17833298 (Version 1)
Quarter: 2020Q2

REPORT INFORMATION
  Report Type: Spontaneous
  Country: US (occurrence: US)
  Receive Date: 20200528
  Receipt Date: 20200528
  Transmission Date: 20200714
  Serious: Yes (Other)
  Sender: FDA-Public Use
  Company Number: US-HIKMA PHARMACEUTICALS USA INC.-US-H14001-20-02505

PATIENT

DRUGS (1)
  1. CODEINE [Suspect]
     Active Substance: CODEINE
     Indication: PRODUCT USED FOR UNKNOWN INDICATION
     Route: 065

REACTIONS (10)
  - Drug hypersensitivity [Unknown]
  - Back pain [Unknown]
  - Maternal exposure during pregnancy [Unknown]
  - Liver disorder [Unknown]
  - HELLP syndrome [Unknown]
  - Pain [Unknown]
  - Ovarian cyst [Unknown]
  - Rash [Unknown]
  - Splenomegaly [Unknown]
  - Abnormal faeces [Unknown]

NARRATIVE: CASE EVENT DATE: 20190408
